FAERS Safety Report 16790355 (Version 1)
Quarter: 2019Q4

REPORT INFORMATION
  Report Type: Spontaneous
  Country: US (occurrence: US)
  Receive Date: 20190909
  Receipt Date: 20190909
  Transmission Date: 20200122
  Serious: Yes (Hospitalization)
  Sender: FDA-Public Use
  Company Number: None

PATIENT
  Age: 64 Year
  Sex: Female

DRUGS (9)
  1. GLATIRAMER [Suspect]
     Active Substance: GLATIRAMER
     Dosage: ?          OTHER FREQUENCY:3 TIMES WEEKLY;?
     Route: 058
     Dates: start: 20180716
  2. PRENATAL 19 TAB [Concomitant]
  3. FLUOXETINE CAP 40 MG [Concomitant]
  4. VITAMIN D3 CAP 5000 UNIT [Concomitant]
  5. VITAMIN B12 TAB 500 MCG [Concomitant]
  6. GABAPENTIN TAB 800 MG [Concomitant]
  7. SALMON OIL CAP 1000 MG [Concomitant]
  8. LEVOTHYROXINE TAB 50 MCG [Concomitant]
  9. TRAZODONE TB 50 MG [Concomitant]

REACTIONS (2)
  - Lower limb fracture [None]
  - Fall [None]
